FAERS Safety Report 14705802 (Version 1)
Quarter: 2018Q2

REPORT INFORMATION
  Report Type: Spontaneous
  Country: GB (occurrence: GB)
  Receive Date: 20180402
  Receipt Date: 20180402
  Transmission Date: 20180711
  Serious: Yes (Life-Threatening, Other)
  Sender: FDA-Public Use
  Company Number: GB-B.I. PHARMACEUTICALS,INC./RIDGEFIELD-2018-12-001182

PATIENT
  Age: 73 Year
  Sex: Female

DRUGS (1)
  1. JARDIANCE [Suspect]
     Active Substance: EMPAGLIFLOZIN
     Indication: TYPE 2 DIABETES MELLITUS
     Route: 048
     Dates: start: 20180228, end: 20180312

REACTIONS (7)
  - Lip swelling [Recovering/Resolving]
  - Dizziness [Recovering/Resolving]
  - Lip pain [Recovering/Resolving]
  - Diarrhoea [Recovered/Resolved]
  - Fatigue [Recovering/Resolving]
  - Dry mouth [Recovering/Resolving]
  - Thirst [Recovering/Resolving]

NARRATIVE: CASE EVENT DATE: 20180301
